FAERS Safety Report 25704932 (Version 4)
Quarter: 2025Q3

REPORT INFORMATION
  Report Type: Report from Study
  Country: US (occurrence: US)
  Receive Date: 20250820
  Receipt Date: 20250918
  Transmission Date: 20251020
  Serious: Yes (Other)
  Sender: MALLINCKRODT
  Company Number: US-MALLINCKRODT-MNK202504959

PATIENT
  Age: 9 Month
  Sex: Female
  Weight: 8 kg

DRUGS (4)
  1. CORTICOTROPIN [Suspect]
     Active Substance: CORTICOTROPIN
     Indication: Infantile spasms
     Dosage: 56 UNITS
     Route: 030
     Dates: start: 202504, end: 2025
  2. CORTICOTROPIN [Suspect]
     Active Substance: CORTICOTROPIN
     Route: 030
     Dates: start: 20250816
  3. VIGABATRIN [Concomitant]
     Active Substance: VIGABATRIN
  4. ZONISAMIDE [Concomitant]
     Active Substance: ZONISAMIDE

REACTIONS (5)
  - Infantile spasms [Unknown]
  - Disease recurrence [Unknown]
  - Insomnia [Unknown]
  - Injection site haemorrhage [Unknown]
  - Irritability [Recovering/Resolving]

NARRATIVE: CASE EVENT DATE: 20250101
